FAERS Safety Report 13012970 (Version 6)
Quarter: 2017Q3

REPORT INFORMATION
  Report Type: Report from Study
  Country: US (occurrence: US)
  Receive Date: 20161209
  Receipt Date: 20170706
  Transmission Date: 20171127
  Serious: Yes (Other)
  Sender: FDA-Public Use
  Company Number: US-SAOL THERAPEUTICS-2016SAO01190

PATIENT
  Age: 50 Year
  Sex: Male

DRUGS (16)
  1. BUPIVICAINE [Suspect]
     Active Substance: BUPIVACAINE
     Dosage: 17.237 MG, \DAY
     Route: 037
     Dates: start: 20161207, end: 20161222
  2. BUPIVICAINE [Suspect]
     Active Substance: BUPIVACAINE
     Dosage: 14.353 MG, \DAY
     Route: 037
     Dates: start: 20161207, end: 20161222
  3. BUPIVICAINE [Suspect]
     Active Substance: BUPIVACAINE
     Dosage: 17.227 MG, \DAY
     Dates: start: 20161222
  4. CLONIDINE. [Suspect]
     Active Substance: CLONIDINE
     Dosage: 358.52 ?G, \DAY
     Dates: start: 20161222
  5. CLONIDINE. [Suspect]
     Active Substance: CLONIDINE
     Dosage: 430.93 ?G, \DAY
     Route: 037
     Dates: start: 20161207, end: 20161222
  6. BUPIVICAINE [Suspect]
     Active Substance: BUPIVACAINE
     Dosage: 14.341 MG, \DAY
     Dates: start: 20161222
  7. COMPOUNDED BACLOFEN [Suspect]
     Active Substance: BACLOFEN
     Indication: COMPLEX REGIONAL PAIN SYNDROME
     Dosage: 215.46 ?G, \DAY
     Route: 037
     Dates: start: 20161207, end: 20161222
  8. DILAUDID [Suspect]
     Active Substance: HYDROMORPHONE HYDROCHLORIDE
     Dosage: 4.302 MG, \DAY
     Dates: start: 20161222
  9. DILAUDID [Suspect]
     Active Substance: HYDROMORPHONE HYDROCHLORIDE
     Dosage: 5.1682 MG/DAY
     Dates: start: 20161222
  10. COMPOUNDED BACLOFEN [Suspect]
     Active Substance: BACLOFEN
     Indication: PAIN
     Dosage: 179.41 ?G, \DAY
     Route: 037
     Dates: start: 20161207, end: 20161222
  11. COMPOUNDED BACLOFEN [Suspect]
     Active Substance: BACLOFEN
     Dosage: 179.26 ?G, \DAY
     Dates: start: 20161222
  12. DILAUDID [Suspect]
     Active Substance: HYDROMORPHONE HYDROCHLORIDE
     Dosage: 4.305 MG, \DAY
     Route: 037
     Dates: start: 20161207, end: 20161222
  13. DILAUDID [Suspect]
     Active Substance: HYDROMORPHONE HYDROCHLORIDE
     Dosage: 5.171 MG, \DAY
     Route: 037
     Dates: start: 20161207, end: 20161222
  14. COMPOUNDED BACLOFEN [Suspect]
     Active Substance: BACLOFEN
     Dosage: 215.34 ?G, \DAY
     Dates: start: 20161222
  15. CLONIDINE. [Suspect]
     Active Substance: CLONIDINE
     Dosage: 358.82 ?G, \DAY
     Route: 037
     Dates: start: 20161207, end: 20161222
  16. CLONIDINE. [Suspect]
     Active Substance: CLONIDINE
     Dosage: 430.69 ?G, \DAY
     Dates: start: 20161222

REACTIONS (5)
  - Headache [Recovered/Resolved]
  - Off label use [Unknown]
  - Amputation [Unknown]
  - Device alarm issue [Unknown]
  - Surgery [Unknown]

NARRATIVE: CASE EVENT DATE: 201703
